FAERS Safety Report 6209708-9 (Version None)
Quarter: 2009Q2

REPORT INFORMATION
  Report Type: 
  Country: None (occurrence: None)
  Receive Date: 20090601
  Receipt Date: 20090520
  Transmission Date: 20091009
  Serious: Yes (Hospitalization, Other)
  Sender: FDA-Public Use
  Company Number: MX-JNJFOC-20090505288

PATIENT
  Sex: Female

DRUGS (1)
  1. CAELYX [Suspect]
     Indication: OVARIAN CANCER
     Dosage: 4 CYCLES
     Route: 042

REACTIONS (3)
  - MUCOSAL INFLAMMATION [None]
  - PNEUMONITIS [None]
  - RASH [None]
